FAERS Safety Report 11919744 (Version 1)
Quarter: 2016Q1

REPORT INFORMATION
  Report Type: Spontaneous
  Country: US (occurrence: US)
  Receive Date: 20160115
  Receipt Date: 20160115
  Transmission Date: 20160526
  Serious: No
  Sender: FDA-Public Use
  Company Number: US-BAYER-2016-008460

PATIENT
  Age: 63 Year
  Sex: Female
  Weight: 68.27 kg

DRUGS (4)
  1. NORTRIPTYLINE [Concomitant]
     Active Substance: NORTRIPTYLINE
  2. OXYTROL FOR WOMEN [Suspect]
     Active Substance: OXYBUTYNIN
     Indication: HYPERTONIC BLADDER
     Dosage: 1 DF, UNK - OTHER FREQ.
     Route: 061
     Dates: start: 201505, end: 20160107
  3. SIMVASTATIN. [Concomitant]
     Active Substance: SIMVASTATIN
  4. CITALOPRAM [Concomitant]
     Active Substance: CITALOPRAM HYDROBROMIDE

REACTIONS (7)
  - Product quality issue [None]
  - Pruritus [Not Recovered/Not Resolved]
  - Scab [Not Recovered/Not Resolved]
  - Skin exfoliation [Recovered/Resolved]
  - Incontinence [None]
  - Skin burning sensation [Recovered/Resolved]
  - Expired product administered [None]

NARRATIVE: CASE EVENT DATE: 2015
